FAERS Safety Report 20009734 (Version 1)
Quarter: 2021Q4

REPORT INFORMATION
  Report Type: Report from Study
  Country: MX (occurrence: MX)
  Receive Date: 20211028
  Receipt Date: 20211028
  Transmission Date: 20220303
  Serious: Yes (Death)
  Sender: FDA-Public Use
  Company Number: MX-NOVARTISPH-NVSC2021MX246610

PATIENT
  Age: 76 Year
  Sex: Male

DRUGS (1)
  1. METFORMIN HYDROCHLORIDE\VILDAGLIPTIN [Suspect]
     Active Substance: METFORMIN HYDROCHLORIDE\VILDAGLIPTIN
     Indication: Diabetes mellitus
     Dosage: 1 DF, UNK (2 YEARS AGO, DID NOT KNOWN EXACT DATE)
     Route: 065
     Dates: start: 2018

REACTIONS (1)
  - Death [Fatal]

NARRATIVE: CASE EVENT DATE: 20210401
